FAERS Safety Report 7094290-7 (Version None)
Quarter: 2010Q4

REPORT INFORMATION
  Report Type: 
  Country: None (occurrence: None)
  Receive Date: 20101110
  Receipt Date: 20101030
  Transmission Date: 20110411
  Serious: Yes (Hospitalization)
  Sender: FDA-Public Use
  Company Number: US-ACTELION-A-NJ2010-41217

PATIENT

DRUGS (2)
  1. BOSENTAN TABLET UNKNOWN US MG [Suspect]
     Indication: PULMONARY ARTERIAL HYPERTENSION
     Dosage: UNK
     Route: 048
     Dates: start: 20100301, end: 20100101
  2. REVATIO [Concomitant]

REACTIONS (4)
  - GOUT [None]
  - HYPERKALAEMIA [None]
  - PAIN IN EXTREMITY [None]
  - SEPSIS [None]
